FAERS Safety Report 15164600 (Version 1)
Quarter: 2018Q3

REPORT INFORMATION
  Report Type: Report from Study
  Country: US (occurrence: US)
  Receive Date: 20180719
  Receipt Date: 20180719
  Transmission Date: 20181010
  Serious: Yes (Other)
  Sender: FDA-Public Use
  Company Number: US-BAYER-2018-130758

PATIENT
  Age: 44 Year
  Sex: Female

DRUGS (2)
  1. BETASERON [Suspect]
     Active Substance: INTERFERON BETA-1B
     Indication: MULTIPLE SCLEROSIS
     Dosage: 8 MIU, QOD
     Route: 058
     Dates: start: 19930101, end: 19970101
  2. MANNITOL. [Suspect]
     Active Substance: MANNITOL

REACTIONS (10)
  - Adverse drug reaction [Recovered/Resolved]
  - Myocardial infarction [Recovered/Resolved]
  - Metastases to lymph nodes [Recovered/Resolved]
  - Injection site swelling [Recovered/Resolved]
  - Tremor [Recovered/Resolved]
  - Breast cancer stage II [Recovered/Resolved]
  - Heart rate increased [Recovered/Resolved]
  - Injection site bruising [Recovered/Resolved]
  - Asthenia [Recovered/Resolved]
  - Hyperhidrosis [None]

NARRATIVE: CASE EVENT DATE: 19930101
